FAERS Safety Report 6385008-1 (Version None)
Quarter: 2009Q4

REPORT INFORMATION
  Report Type: 
  Country: None (occurrence: None)
  Receive Date: 20091002
  Receipt Date: 20090923
  Transmission Date: 20100525
  Serious: Yes (Other)
  Sender: FDA-Public Use
  Company Number: PHEH2009US11657

PATIENT
  Sex: Male

DRUGS (4)
  1. FOCALIN [Suspect]
     Dosage: UNK
     Dates: start: 20080101
  2. FOCALIN [Suspect]
     Dosage: NO TREATMENT
  3. FOCALIN [Suspect]
     Dosage: UNK
     Dates: start: 20090908
  4. FOCALIN [Suspect]
     Dosage: UNK
     Dates: start: 20090921

REACTIONS (3)
  - AGITATION [None]
  - DEPRESSED MOOD [None]
  - NEGATIVE THOUGHTS [None]
